FAERS Safety Report 5115728-8 (Version None)
Quarter: 2006Q3

REPORT INFORMATION
  Report Type: 
  Country: None (occurrence: None)
  Receive Date: 20060926
  Receipt Date: 20060926
  Transmission Date: 20061208
  Serious: Yes (Other)
  Sender: FDA-Public Use
  Company Number: None

PATIENT
  Sex: Male
  Weight: 64.8644 kg

DRUGS (1)
  1. MOBIC [Suspect]
     Indication: ARTHRALGIA
     Dosage: 7.5 DAILY PO
     Route: 048
     Dates: start: 20060831

REACTIONS (2)
  - PHARMACEUTICAL PRODUCT COMPLAINT [None]
  - RECTAL HAEMORRHAGE [None]
